FAERS Safety Report 10761629 (Version 1)
Quarter: 2015Q1

REPORT INFORMATION
  Report Type: Spontaneous
  Country: US (occurrence: None)
  Receive Date: 20150203
  Receipt Date: 20150203
  Transmission Date: 20150721
  Serious: Yes (Hospitalization)
  Sender: FDA-Public Use
  Company Number: None

PATIENT
  Age: 27 Year
  Sex: Female
  Weight: 59.42 kg

DRUGS (2)
  1. METHYLERGONOVINE [Suspect]
     Active Substance: METHYLERGONOVINE
     Indication: HAEMORRHAGE PROPHYLAXIS
     Route: 030
     Dates: start: 20150131
  2. METHYLERGONOVINE [Suspect]
     Active Substance: METHYLERGONOVINE
     Indication: UTERINE DILATION AND CURETTAGE
     Route: 030
     Dates: start: 20150131

REACTIONS (7)
  - Diplopia [None]
  - Dizziness [None]
  - Gaze palsy [None]
  - Vision blurred [None]
  - Mydriasis [None]
  - Speech disorder [None]
  - Headache [None]

NARRATIVE: CASE EVENT DATE: 20150131
